FAERS Safety Report 5676464-2 (Version None)
Quarter: 2008Q2

REPORT INFORMATION
  Report Type: 
  Country: None (occurrence: None)
  Receive Date: 20080310
  Receipt Date: 20071231
  Transmission Date: 20081010
  Serious: Yes (Other)
  Sender: FDA-Public Use
  Company Number: 08-003

PATIENT
  Age: 75 Year
  Sex: Male
  Weight: 113.3993 kg

DRUGS (9)
  1. ALEVE [Suspect]
     Indication: ARTHRITIS
     Dosage: 440 MG, DAILY, ORAL
     Route: 048
     Dates: start: 20071125, end: 20071225
  2. ASPIRIN [Suspect]
     Indication: CARDIAC OPERATION
     Dosage: 220 MG, DAILY, ORAL
     Route: 048
     Dates: start: 20071225, end: 20071225
  3. CARDIA XT [Concomitant]
  4. TRAZODONE HCL [Concomitant]
  5. COZAAR [Concomitant]
  6. TOPROL-XL [Concomitant]
  7. PREVACID [Concomitant]
  8. AMBIEN [Concomitant]
  9. GLUCOSAMINE CHONDROITIN [Concomitant]

REACTIONS (3)
  - ABDOMINAL PAIN UPPER [None]
  - BLOOD PRESSURE INCREASED [None]
  - DYSPEPSIA [None]
